FAERS Safety Report 15073405 (Version 1)
Quarter: 2018Q2

REPORT INFORMATION
  Report Type: Spontaneous
  Country: US (occurrence: US)
  Receive Date: 20180627
  Receipt Date: 20180627
  Transmission Date: 20180711
  Serious: No
  Sender: FDA-Public Use
  Company Number: US-PFIZER INC-2018256510

PATIENT
  Age: 55 Year
  Sex: Female

DRUGS (6)
  1. TRAMADOL HCL [Concomitant]
     Active Substance: TRAMADOL HYDROCHLORIDE
     Indication: PAIN
     Dosage: 50 MG, (50 MG TABLET BY MOUTH EVERY 4-6 HOURS)
     Route: 048
  2. LYRICA [Suspect]
     Active Substance: PREGABALIN
     Dosage: 200 MG, 3X/DAY
     Route: 048
  3. PREGABALIN. [Suspect]
     Active Substance: PREGABALIN
     Dosage: 200 MG, 3X/DAY
     Route: 048
  4. LYRICA [Suspect]
     Active Substance: PREGABALIN
     Indication: RADIATION FIBROSIS
     Dosage: 300 MG, 3X/DAY
     Route: 048
  5. PREGABALIN. [Suspect]
     Active Substance: PREGABALIN
     Indication: RADIATION FIBROSIS
     Dosage: 300 MG, 3X/DAY
  6. OXCARBAZEPINE. [Concomitant]
     Active Substance: OXCARBAZEPINE
     Indication: NARCOLEPSY
     Dosage: 600 MG, (600 MG TABLET BY MOUTH 1 TIME DAILY IN PM)
     Route: 048

REACTIONS (3)
  - Overdose [Unknown]
  - Drug ineffective [Unknown]
  - Intentional product misuse [Unknown]
